FAERS Safety Report 10874824 (Version 1)
Quarter: 2015Q1

REPORT INFORMATION
  Report Type: Spontaneous
  Country: US (occurrence: US)
  Receive Date: 20150227
  Receipt Date: 20150227
  Transmission Date: 20150721
  Serious: Yes (Death)
  Sender: FDA-Public Use
  Company Number: US-BANPHARM-20153521

PATIENT
  Age: 34 Year
  Sex: Female

DRUGS (10)
  1. FREON [Suspect]
     Active Substance: UNSPECIFIED INGREDIENT
  2. HYDROCODONE [Suspect]
     Active Substance: HYDROCODONE
  3. DEXTROMETHORPHAN [Suspect]
     Active Substance: DEXTROMETHORPHAN
  4. TRAZODONE [Suspect]
     Active Substance: TRAZODONE HYDROCHLORIDE
  5. ALPRAZOLAM. [Suspect]
     Active Substance: ALPRAZOLAM
  6. ACETAMINOPHEN. [Suspect]
     Active Substance: ACETAMINOPHEN
  7. METHADONE [Suspect]
     Active Substance: METHADONE HYDROCHLORIDE
  8. DOXYLAMINE [Suspect]
     Active Substance: DOXYLAMINE
  9. FLUOXETINE [Suspect]
     Active Substance: FLUOXETINE\FLUOXETINE HYDROCHLORIDE
  10. DIPHENHYDRAMINE UNKNOWN PRODUCT [Suspect]
     Active Substance: DIPHENHYDRAMINE

REACTIONS (1)
  - Drug abuse [Fatal]
